FAERS Safety Report 13230191 (Version 1)
Quarter: 2017Q1

REPORT INFORMATION
  Report Type: Spontaneous
  Country: US (occurrence: US)
  Receive Date: 20170214
  Receipt Date: 20170214
  Transmission Date: 20170428
  Serious: Yes (Hospitalization)
  Sender: FDA-Public Use
  Company Number: None

PATIENT
  Age: 78 Year
  Sex: Male
  Weight: 62 kg

DRUGS (2)
  1. LEUPROLIDE ACETATE. [Suspect]
     Active Substance: LEUPROLIDE ACETATE
     Dates: end: 20160208
  2. CASODEX [Suspect]
     Active Substance: BICALUTAMIDE
     Dates: end: 20160504

REACTIONS (2)
  - Rectal ulcer [None]
  - Rectal haemorrhage [None]

NARRATIVE: CASE EVENT DATE: 20170205
